FAERS Safety Report 5672958-4 (Version None)
Quarter: 2008Q1

REPORT INFORMATION
  Report Type: 
  Country: None (occurrence: None)
  Receive Date: 20080317
  Receipt Date: 20080303
  Transmission Date: 20080703
  Serious: Yes (Hospitalization)
  Sender: FDA-Public Use
  Company Number: 2008BI000737

PATIENT
  Age: 77 Year
  Sex: Female

DRUGS (6)
  1. AVONEX [Suspect]
     Indication: MULTIPLE SCLEROSIS
     Dosage: 30 UG; QW; IM
     Route: 030
     Dates: start: 20030602
  2. NORVASC [Concomitant]
  3. SYNTHROID [Concomitant]
  4. DITROPAN [Concomitant]
  5. COLACE [Concomitant]
  6. SENOKOT [Concomitant]

REACTIONS (4)
  - BACK PAIN [None]
  - CONSTIPATION [None]
  - FALL [None]
  - PELVIC FRACTURE [None]
